FAERS Safety Report 25819935 (Version 1)
Quarter: 2025Q3

REPORT INFORMATION
  Report Type: Spontaneous
  Country: US (occurrence: US)
  Receive Date: 20250918
  Receipt Date: 20250918
  Transmission Date: 20251021
  Serious: Yes (Life-Threatening, Other)
  Sender: SERVIER
  Company Number: US-SERVIER-S25013193

PATIENT

DRUGS (1)
  1. ASPARLAS [Suspect]
     Active Substance: CALASPARGASE PEGOL-MKNL
     Indication: Product used for unknown indication
     Route: 042
     Dates: end: 202508

REACTIONS (5)
  - Cardiac arrest [Recovered/Resolved]
  - Nausea [Unknown]
  - Urticaria [Unknown]
  - Pruritus [Unknown]
  - Drug level decreased [Unknown]

NARRATIVE: CASE EVENT DATE: 20250801
